FAERS Safety Report 8219999-0 (Version None)
Quarter: 2012Q1

REPORT INFORMATION
  Report Type: 
  Country: None (occurrence: None)
  Receive Date: 20120315
  Receipt Date: 20120305
  Transmission Date: 20120608
  Serious: Yes (Hospitalization, Other)
  Sender: FDA-Public Use
  Company Number: 2012MA002895

PATIENT
  Sex: Female
  Weight: 63.05 kg

DRUGS (18)
  1. NITROGLYCERIN [Concomitant]
  2. LIPITOR [Concomitant]
  3. LORTAB [Concomitant]
  4. ALTACE [Concomitant]
  5. ALFALFA [Concomitant]
  6. BENICAR [Concomitant]
  7. PLAVIX [Concomitant]
  8. DIGOXIN [Suspect]
     Dosage: 0.25 MG; PO
     Route: 048
     Dates: start: 20030821, end: 20080601
  9. TICLOPIDINE HCL [Concomitant]
  10. SYNTHROID [Concomitant]
  11. CALCIUM/VITAMIN D [Concomitant]
  12. MULTI-VITAMINS [Concomitant]
  13. LASIX [Concomitant]
  14. DIPHENYDRAMINE HCL [Concomitant]
  15. HYDRALAZINE HCL [Concomitant]
  16. ASPIRIN [Concomitant]
  17. METOPROLOL SUCCINATE [Concomitant]
  18. OMEPRAZOLE [Concomitant]

REACTIONS (50)
  - PAIN [None]
  - CHEST DISCOMFORT [None]
  - MYALGIA [None]
  - ASTHENIA [None]
  - PYREXIA [None]
  - TEMPERATURE INTOLERANCE [None]
  - CHRONIC OBSTRUCTIVE PULMONARY DISEASE [None]
  - MYOCARDIAL ISCHAEMIA [None]
  - DYSPNOEA [None]
  - DYSPHAGIA [None]
  - HYPOAESTHESIA [None]
  - THYROID DISORDER [None]
  - BLOOD PRESSURE INCREASED [None]
  - BLOOD GLUCOSE INCREASED [None]
  - PERICARDIAL EFFUSION [None]
  - UNEVALUABLE EVENT [None]
  - TOBACCO USER [None]
  - APPETITE DISORDER [None]
  - MUSCLE SPASMS [None]
  - ECONOMIC PROBLEM [None]
  - CHILLS [None]
  - DIARRHOEA [None]
  - DYSURIA [None]
  - JOINT SWELLING [None]
  - BACK PAIN [None]
  - WHEEZING [None]
  - AORTIC ARTERIOSCLEROSIS [None]
  - ADRENAL ADENOMA [None]
  - BILIARY DILATATION [None]
  - HEART INJURY [None]
  - FIBROMYALGIA [None]
  - NAUSEA [None]
  - SINUS DISORDER [None]
  - PALPITATIONS [None]
  - TREMOR [None]
  - ELECTROCARDIOGRAM POOR R-WAVE PROGRESSION [None]
  - BLOOD SODIUM DECREASED [None]
  - ADRENAL MASS [None]
  - ANXIETY [None]
  - MUSCULAR WEAKNESS [None]
  - AMNESIA [None]
  - ARTHRALGIA [None]
  - CORONARY ARTERY DISEASE [None]
  - RASH [None]
  - CONTUSION [None]
  - INSOMNIA [None]
  - MYOCARDIAL INFARCTION [None]
  - ABDOMINAL PAIN [None]
  - HEADACHE [None]
  - EXERCISE TOLERANCE DECREASED [None]
